FAERS Safety Report 8802582 (Version 2)
Quarter: 2012Q4

REPORT INFORMATION
  Report Type: 
  Country: JP (occurrence: JP)
  Receive Date: 20120921
  Receipt Date: 20121123
  Transmission Date: 20130627
  Serious: Yes (Other)
  Sender: FDA-Public Use
  Company Number: JP-AMGEN-JPNCT2012059785

PATIENT
  Age: 82 Year
  Sex: Male
  Weight: 58 kg

DRUGS (22)
  1. DARBEPOETIN ALFA [Suspect]
     Indication: NEPHROGENIC ANAEMIA
     Dosage: 40 mug, q4wk
     Route: 058
     Dates: start: 20110824, end: 20120111
  2. DARBEPOETIN ALFA [Suspect]
     Dosage: 40 mug, qd
     Route: 058
     Dates: start: 20120210, end: 20120210
  3. DARBEPOETIN ALFA [Suspect]
     Dosage: 40 mug, qd
     Route: 058
     Dates: start: 20120229, end: 20120229
  4. DARBEPOETIN ALFA [Suspect]
     Dosage: 40 mug, qd
     Route: 058
     Dates: start: 20120328, end: 20120328
  5. DARBEPOETIN ALFA [Suspect]
     Dosage: 40 mug, qd
     Route: 058
     Dates: start: 20120411, end: 20120411
  6. DARBEPOETIN ALFA [Suspect]
     Dosage: 40 mug, qd
     Route: 058
     Dates: start: 20120515, end: 20120515
  7. DARBEPOETIN ALFA [Suspect]
     Dosage: 40 mug, q4wk
     Route: 058
     Dates: start: 20120606, end: 20120801
  8. IRBETAN [Concomitant]
     Indication: NEPHROSCLEROSIS
     Dosage: UNK
     Route: 048
  9. IRRIBOW [Concomitant]
     Dosage: UNK
     Route: 048
  10. AMLODIPINE [Concomitant]
     Indication: NEPHROSCLEROSIS
     Dosage: UNK
     Route: 048
  11. TANATRIL [Concomitant]
     Indication: NEPHROSCLEROSIS
     Dosage: UNK
     Route: 048
  12. TAKEPRON [Concomitant]
     Dosage: UNK
     Route: 048
  13. PLETAAL [Concomitant]
     Dosage: UNK
     Route: 048
  14. ARGAMATE [Concomitant]
     Indication: NEPHROSCLEROSIS
     Dosage: UNK
     Route: 048
  15. FERROMIA [Concomitant]
     Dosage: Uncertainty
     Route: 048
  16. JUSO [Concomitant]
     Indication: NEPHROSCLEROSIS
     Dosage: UNK
     Route: 048
  17. BIOFERMIN [Concomitant]
     Dosage: UNK
     Route: 048
  18. SODIUM BICARBONATE [Concomitant]
     Indication: NEPHROSCLEROSIS
     Dosage: UNK
     Route: 048
  19. NORVASC [Concomitant]
     Indication: NEPHROSCLEROSIS
     Dosage: UNK
     Route: 048
  20. FLUITRAN [Concomitant]
     Indication: NEPHROSCLEROSIS
     Dosage: UNK
     Route: 048
  21. DIART [Concomitant]
     Indication: NEPHROSCLEROSIS
     Dosage: UNK
     Route: 048
  22. TANNALBIN [Concomitant]
     Dosage: UNK
     Route: 048

REACTIONS (1)
  - Prostate cancer [Recovered/Resolved]
